FAERS Safety Report 5902541-4 (Version None)
Quarter: 2008Q3

REPORT INFORMATION
  Report Type: 
  Country: None (occurrence: None)
  Receive Date: 20080925
  Receipt Date: 20080911
  Transmission Date: 20090109
  Serious: Yes (Other)
  Sender: FDA-Public Use
  Company Number: 238679J08USA

PATIENT
  Age: 45 Year
  Sex: Female
  Weight: 63.5036 kg

DRUGS (2)
  1. REBIF [Suspect]
     Indication: MULTIPLE SCLEROSIS
     Dosage: 44 MCG, 3 IN 1 WEEKS, SUBCUTANEOUS
     Route: 058
     Dates: start: 20071226, end: 20080401
  2. ZOLOFT [Concomitant]

REACTIONS (13)
  - ANGIOTENSIN CONVERTING ENZYME INCREASED [None]
  - DISEASE RECURRENCE [None]
  - DYSPNOEA [None]
  - HEADACHE [None]
  - ILL-DEFINED DISORDER [None]
  - INFLUENZA LIKE ILLNESS [None]
  - INJECTION SITE ERYTHEMA [None]
  - INJECTION SITE PAIN [None]
  - INJECTION SITE REACTION [None]
  - MOVEMENT DISORDER [None]
  - PAIN [None]
  - PULMONARY SARCOIDOSIS [None]
  - SPEECH DISORDER [None]
